FAERS Safety Report 18566255 (Version 2)
Quarter: 2020Q4

REPORT INFORMATION
  Report Type: Spontaneous
  Country: US (occurrence: US)
  Receive Date: 20201201
  Receipt Date: 20201203
  Transmission Date: 20210114
  Serious: No
  Sender: FDA-Public Use
  Company Number: US-PFIZER INC-2020473871

PATIENT
  Sex: Female
  Weight: 57.61 kg

DRUGS (1)
  1. PREGABALIN. [Suspect]
     Active Substance: PREGABALIN
     Indication: FIBROMYALGIA
     Dosage: UNK

REACTIONS (5)
  - Pain in extremity [Unknown]
  - Restless legs syndrome [Unknown]
  - Discomfort [Unknown]
  - Drug ineffective [Unknown]
  - Insomnia [Unknown]
